FAERS Safety Report 9068515 (Version 1)
Quarter: 2013Q1

REPORT INFORMATION
  Report Type: Spontaneous
  Country: US (occurrence: None)
  Receive Date: 20130212
  Receipt Date: 20130212
  Transmission Date: 20140127
  Serious: Yes (Hospitalization)
  Sender: FDA-Public Use
  Company Number: None

PATIENT
  Sex: Female
  Weight: 56.8 kg

DRUGS (1)
  1. ZARELTO [Suspect]
     Indication: HIP ARTHROPLASTY
     Dosage: 10MG DAILY
     Dates: start: 20121023, end: 20121113

REACTIONS (9)
  - Palpitations [None]
  - Heart rate increased [None]
  - Chest discomfort [None]
  - Dyspnoea [None]
  - Fatigue [None]
  - Dizziness [None]
  - Pain in extremity [None]
  - Muscle spasms [None]
  - Hypotension [None]
